FAERS Safety Report 18841563 (Version 1)
Quarter: 2021Q1

REPORT INFORMATION
  Report Type: Spontaneous
  Country: FR (occurrence: FR)
  Receive Date: 20210203
  Receipt Date: 20210203
  Transmission Date: 20210419
  Serious: Yes (Hospitalization)
  Sender: FDA-Public Use
  Company Number: FR-BAYER-2021-048330

PATIENT
  Age: 89 Year
  Sex: Female
  Weight: 66.5 kg

DRUGS (10)
  1. SERESTA [Concomitant]
     Active Substance: OXAZEPAM
  2. ACIDE FOLIQUE [Concomitant]
     Active Substance: FOLIC ACID
  3. ECONAZOLE. [Concomitant]
     Active Substance: ECONAZOLE NITRATE
  4. ACUPAN [Concomitant]
     Active Substance: NEFOPAM HYDROCHLORIDE
  5. LOVENOX [Suspect]
     Active Substance: ENOXAPARIN SODIUM
     Indication: THROMBOSIS PROPHYLAXIS
     Route: 042
     Dates: start: 20201209, end: 20210106
  6. DUPHALAC [Concomitant]
     Active Substance: LACTULOSE
  7. AZACTAM [Suspect]
     Active Substance: AZTREONAM
     Indication: ARTHRITIS BACTERIAL
     Route: 042
     Dates: start: 20201126, end: 20210111
  8. CIFLOX [Suspect]
     Active Substance: CIPROFLOXACIN
     Indication: ARTHRITIS BACTERIAL
     Dosage: 2 DF, QD
     Route: 042
     Dates: start: 20201126, end: 20210111
  9. KARDEGIC [Suspect]
     Active Substance: ASPIRIN DL-LYSINE
     Indication: PROPHYLAXIS
     Route: 048
     Dates: end: 20200105
  10. AMLODIPINE [Concomitant]
     Active Substance: AMLODIPINE BESYLATE

REACTIONS (4)
  - Anaemia [Recovered/Resolved]
  - Prothrombin time ratio decreased [Recovering/Resolving]
  - Haematoma [Recovering/Resolving]
  - Haemoptysis [Recovered/Resolved]

NARRATIVE: CASE EVENT DATE: 20201226
